FAERS Safety Report 5868741-7 (Version None)
Quarter: 2008Q3

REPORT INFORMATION
  Report Type: 
  Country: None (occurrence: None)
  Receive Date: 20080903
  Receipt Date: 20080826
  Transmission Date: 20090109
  Serious: Yes (Hospitalization, Disabling, Other)
  Sender: FDA-Public Use
  Company Number: JP-ABBOTT-08P-087-0471314-00

PATIENT
  Sex: Female
  Weight: 9.2 kg

DRUGS (4)
  1. SEVOFLURANE [Suspect]
     Indication: ANAESTHESIA PROCEDURE
     Dosage: 1 - 5 %
     Route: 055
     Dates: start: 20080812, end: 20080812
  2. ATROPINE [Concomitant]
     Indication: BLOOD PRESSURE DECREASED
     Route: 042
     Dates: start: 20080812, end: 20080812
  3. NITROUS OXIDE [Concomitant]
     Indication: INDUCTION AND MAINTENANCE OF ANAESTHESIA
     Route: 055
     Dates: start: 20080812, end: 20080812
  4. LIDOCAINE HYDROCHLORIDE [Concomitant]
     Indication: HAEMORRHAGE PROPHYLAXIS
     Dosage: ROUTE:  TI
     Dates: start: 20080812, end: 20080812

REACTIONS (1)
  - RHABDOMYOLYSIS [None]
